FAERS Safety Report 17916822 (Version 1)
Quarter: 2020Q2

REPORT INFORMATION
  Report Type: Spontaneous
  Country: ES (occurrence: ES)
  Receive Date: 20200619
  Receipt Date: 20200619
  Transmission Date: 20200714
  Serious: Yes (Hospitalization)
  Sender: FDA-Public Use
  Company Number: ES-ALLERGAN-2023788US

PATIENT
  Sex: Male

DRUGS (5)
  1. CLEXANE [Concomitant]
     Active Substance: ENOXAPARIN SODIUM
     Dosage: UNK
     Dates: start: 20200315, end: 20200522
  2. FUROSEMIDE FRESENIUS KABI [Concomitant]
     Dosage: UNK
     Dates: start: 20200322, end: 20200501
  3. OMEPRAZOL NORMON                   /00661201/ [Concomitant]
     Dosage: UNK
     Dates: start: 20200323, end: 20200429
  4. CEFTAZIDIME;AVIBACTAM - BP [Suspect]
     Active Substance: AVIBACTAM SODIUM\CEFTAZIDIME
     Indication: PNEUMONIA
     Dosage: 1 DF, Q8HR
     Route: 042
     Dates: start: 20200428, end: 20200430
  5. SOLTRIM [Concomitant]
     Active Substance: SULFAMETHOXAZOLE\TRIMETHOPRIM
     Dosage: UNK
     Dates: start: 20200420, end: 20200504

REACTIONS (1)
  - Clonic convulsion [Recovered/Resolved]

NARRATIVE: CASE EVENT DATE: 20200430
